FAERS Safety Report 16777774 (Version 1)
Quarter: 2019Q4

REPORT INFORMATION
  Report Type: Spontaneous
  Country: US (occurrence: US)
  Receive Date: 20190905
  Receipt Date: 20190905
  Transmission Date: 20200122
  Serious: Yes (Other)
  Sender: FDA-Public Use
  Company Number: None

PATIENT
  Age: 40 Year
  Sex: Female
  Weight: 63 kg

DRUGS (2)
  1. AIMOVIG [Suspect]
     Active Substance: ERENUMAB-AOOE
     Indication: MIGRAINE
     Dosage: ?          QUANTITY:1 INJECTION(S);OTHER FREQUENCY:ONCE PER MONTH;?
     Route: 030
     Dates: start: 20190105, end: 20190905
  2. NAPROXEN. [Concomitant]
     Active Substance: NAPROXEN

REACTIONS (11)
  - Suicidal ideation [None]
  - Increased appetite [None]
  - Insomnia [None]
  - Fatigue [None]
  - Depression [None]
  - Weight increased [None]
  - Abnormal dreams [None]
  - Sleep disorder [None]
  - Myalgia [None]
  - Alopecia [None]
  - Musculoskeletal stiffness [None]

NARRATIVE: CASE EVENT DATE: 20190205
